FAERS Safety Report 25428156 (Version 8)
Quarter: 2025Q4

REPORT INFORMATION
  Report Type: Spontaneous
  Country: AR (occurrence: AR)
  Receive Date: 20250612
  Receipt Date: 20251024
  Transmission Date: 20260117
  Serious: Yes (Hospitalization, Other)
  Sender: SANDOZ
  Company Number: AR-SANDOZ-SDZ2025AR017441

PATIENT
  Age: 73 Year
  Sex: Male
  Weight: 86 kg

DRUGS (5)
  1. TREPROSTINIL SODIUM [Suspect]
     Active Substance: TREPROSTINIL SODIUM
     Indication: Pulmonary hypertension
     Dosage: 30 NG/KG/MIN CONTINUOUS INFUSION
     Route: 058
     Dates: start: 20250318
  2. TREPROSTINIL SODIUM [Suspect]
     Active Substance: TREPROSTINIL SODIUM
     Dosage: 30 NG/KG/MIN, CONTINUOUS INFUSION
     Route: 058
     Dates: start: 20250318
  3. TREPROSTINIL SODIUM [Suspect]
     Active Substance: TREPROSTINIL SODIUM
     Dosage: 24 NG/KG/MIN,CONTINUOUS INFUSION
     Route: 058
     Dates: start: 20250318
  4. TREPROSTINIL SODIUM [Suspect]
     Active Substance: TREPROSTINIL SODIUM
     Dosage: 26 NG/KG/MIN,CONTINUOUS INFUSION
     Route: 058
  5. ACETAMINOPHEN [Concomitant]
     Active Substance: ACETAMINOPHEN
     Indication: Product used for unknown indication
     Dosage: UNK
     Route: 065

REACTIONS (20)
  - Syncope [Recovering/Resolving]
  - Hypoxia [Unknown]
  - Illness [Unknown]
  - Pain [Unknown]
  - Insomnia [Unknown]
  - Mobility decreased [Unknown]
  - Injection site haemorrhage [Recovering/Resolving]
  - Malaise [Unknown]
  - Infusion site pain [Recovered/Resolved]
  - Dyspnoea [Unknown]
  - Injection site mass [Recovering/Resolving]
  - Injection site swelling [Recovering/Resolving]
  - Injection site erythema [Recovering/Resolving]
  - Injection site discomfort [Recovering/Resolving]
  - Injection site pain [Recovering/Resolving]
  - Injection site infection [Unknown]
  - Fatigue [Unknown]
  - Incorrect dose administered [Unknown]
  - Product availability issue [Unknown]
  - Device use error [Unknown]

NARRATIVE: CASE EVENT DATE: 20250318
